FAERS Safety Report 20439577 (Version 3)
Quarter: 2022Q1

REPORT INFORMATION
  Report Type: Spontaneous
  Country: CN (occurrence: CN)
  Receive Date: 20220207
  Receipt Date: 20220210
  Transmission Date: 20220424
  Serious: Yes (Hospitalization)
  Sender: FDA-Public Use
  Company Number: CN-CELGENE-CHN-20220200083

PATIENT
  Age: 58 Year
  Sex: Female
  Weight: 55 kg

DRUGS (3)
  1. AZACITIDINE [Suspect]
     Active Substance: AZACITIDINE
     Indication: Myelodysplastic syndrome
     Dosage: 75 MILLIGRAM/SQ. METER
     Route: 058
     Dates: start: 20211215, end: 20220119
  2. PLACEBO [Suspect]
     Active Substance: UNSPECIFIED INGREDIENT
     Indication: Myelodysplastic syndrome
     Route: 048
     Dates: start: 20211215, end: 20220120
  3. GLYCOSAMINOGLYCANS [Concomitant]
     Active Substance: GLYCOSAMINOGLYCANS
     Indication: Product used for unknown indication
     Route: 061

REACTIONS (1)
  - Respiratory failure [Recovered/Resolved]

NARRATIVE: CASE EVENT DATE: 20220120
